FAERS Safety Report 4578524-6 (Version None)
Quarter: 2005Q1

REPORT INFORMATION
  Report Type: 
  Country: None (occurrence: None)
  Receive Date: 20050204
  Receipt Date: 20050204
  Transmission Date: 20050727
  Serious: Yes (Other)
  Sender: FDA-Public Use
  Company Number: None

PATIENT
  Sex: Female

DRUGS (3)
  1. NAVANE [Suspect]
     Indication: HYPOTHYROIDISM
     Dosage: 10MG AM  15MG HS  PO
     Route: 048
  2. NAVANE [Suspect]
     Indication: OSTEOPOROSIS
     Dosage: 10MG AM  15MG HS  PO
     Route: 048
  3. NAVANE [Suspect]
     Indication: SCHIZOPHRENIA, PARANOID TYPE
     Dosage: 10MG AM  15MG HS  PO
     Route: 048

REACTIONS (2)
  - REFUSAL OF TREATMENT BY PATIENT [None]
  - THERAPEUTIC RESPONSE DECREASED [None]
